FAERS Safety Report 23674242 (Version 1)
Quarter: 2024Q1

REPORT INFORMATION
  Report Type: Spontaneous
  Country: US (occurrence: US)
  Receive Date: 20240326
  Receipt Date: 20240326
  Transmission Date: 20240410
  Serious: No
  Sender: FDA-Public Use
  Company Number: US-ABBVIE-5689541

PATIENT
  Sex: Male

DRUGS (1)
  1. RINVOQ [Suspect]
     Active Substance: UPADACITINIB
     Indication: Psoriatic arthropathy
     Route: 048
     Dates: start: 202312

REACTIONS (6)
  - Arthralgia [Unknown]
  - Liver function test increased [Unknown]
  - Swelling [Unknown]
  - Peripheral swelling [Unknown]
  - Skin discolouration [Unknown]
  - Joint swelling [Unknown]
